FAERS Safety Report 16336582 (Version 1)
Quarter: 2019Q2

REPORT INFORMATION
  Report Type: Spontaneous
  Country: GB (occurrence: GB)
  Receive Date: 20190521
  Receipt Date: 20190521
  Transmission Date: 20190711
  Serious: Yes (Other)
  Sender: FDA-Public Use
  Company Number: GB-ROCHE-2322414

PATIENT
  Age: 3 Year
  Sex: Male

DRUGS (1)
  1. DIAZEPAM. [Suspect]
     Active Substance: DIAZEPAM
     Indication: PARTIAL SEIZURES
     Route: 042

REACTIONS (3)
  - Respiratory arrest [Unknown]
  - Intentional product use issue [Unknown]
  - Off label use [Unknown]
